FAERS Safety Report 16628475 (Version 5)
Quarter: 2021Q1

REPORT INFORMATION
  Report Type: Spontaneous
  Country: CA (occurrence: CA)
  Receive Date: 20190725
  Receipt Date: 20210213
  Transmission Date: 20210419
  Serious: Yes (Hospitalization, Other)
  Sender: FDA-Public Use
  Company Number: CA-CELLTRION INC.-2017CA017702

PATIENT

DRUGS (35)
  1. INFLECTRA [Suspect]
     Active Substance: INFLIXIMAB-DYYB
     Indication: RHEUMATOID ARTHRITIS
     Dosage: 300 MG, 0, 2, 6 WEEKS, THEN EVERY 8 WEEKS
     Route: 042
     Dates: start: 20171128
  2. INFLECTRA [Suspect]
     Active Substance: INFLIXIMAB-DYYB
     Dosage: 800 MG, EVERY 7 WEEKS
     Route: 042
     Dates: start: 20191127
  3. DICLOFENAC [Concomitant]
     Active Substance: DICLOFENAC
     Dosage: 2.5 MG, 1X/DAY
     Route: 065
     Dates: start: 2015
  4. FOLIC ACID. [Concomitant]
     Active Substance: FOLIC ACID
     Dosage: 5 MG, 1X/DAY
  5. INFLECTRA [Suspect]
     Active Substance: INFLIXIMAB-DYYB
     Dosage: 300 MG, 0, 2, 6 WEEKS, THEN EVERY 8 WEEKS
     Route: 042
     Dates: start: 20171212
  6. INFLECTRA [Suspect]
     Active Substance: INFLIXIMAB-DYYB
     Dosage: 800 MG, EVERY 7 WEEKS
     Route: 042
     Dates: start: 20201216
  7. ACETAMINOPHEN. [Concomitant]
     Active Substance: ACETAMINOPHEN
     Dosage: 650 MG
     Dates: start: 20210203, end: 20210203
  8. DIPHENHYDRAMINE. [Concomitant]
     Active Substance: DIPHENHYDRAMINE
     Indication: PREMEDICATION
     Dosage: 50 MG
     Dates: start: 20200708
  9. IRON [Concomitant]
     Active Substance: IRON
     Dosage: UNK
     Route: 065
  10. INFLECTRA [Suspect]
     Active Substance: INFLIXIMAB-DYYB
     Dosage: 300 MG, EVERY 8 WEEKS
     Route: 042
     Dates: start: 20190510
  11. INFLECTRA [Suspect]
     Active Substance: INFLIXIMAB-DYYB
     Dosage: 300 MG, EVERY 8 WEEKS
     Route: 042
     Dates: start: 20190522
  12. INFLECTRA [Suspect]
     Active Substance: INFLIXIMAB-DYYB
     Dosage: 800 MG, EVERY 7 WEEKS
     Route: 042
     Dates: start: 20200130
  13. ACETAMINOPHEN. [Concomitant]
     Active Substance: ACETAMINOPHEN
     Indication: PREMEDICATION
     Dosage: 650 MG
     Dates: start: 20200708
  14. OMEPRAZOLE. [Concomitant]
     Active Substance: OMEPRAZOLE
     Dosage: UNK, 1X/DAY
     Route: 065
  15. INFLECTRA [Suspect]
     Active Substance: INFLIXIMAB-DYYB
     Dosage: 300 MG, EVERY 8 WEEKS
     Route: 042
     Dates: start: 20190322
  16. INFLECTRA [Suspect]
     Active Substance: INFLIXIMAB-DYYB
     Dosage: 800 MG, EVERY 7 WEEKS
     Route: 042
     Dates: start: 20191127
  17. INFLECTRA [Suspect]
     Active Substance: INFLIXIMAB-DYYB
     Dosage: 800 MG, EVERY 7 WEEKS
     Route: 042
     Dates: start: 20200130
  18. INFLECTRA [Suspect]
     Active Substance: INFLIXIMAB-DYYB
     Dosage: 800 MG, EVERY 7 WEEKS
     Route: 042
     Dates: start: 20210203
  19. METHOTREXATE. [Concomitant]
     Active Substance: METHOTREXATE
     Dosage: 1 DF, WEEKLY
     Route: 065
     Dates: start: 2015
  20. INFLECTRA [Suspect]
     Active Substance: INFLIXIMAB-DYYB
     Dosage: 300 MG, 0, 2, 6 WEEKS, THEN EVERY 8 WEEKS
     Route: 042
     Dates: start: 20180123, end: 20180323
  21. INFLECTRA [Suspect]
     Active Substance: INFLIXIMAB-DYYB
     Dosage: 400 MG, EVERY 7 WEEKS FOR 12 MONTHS
     Route: 042
  22. INFLECTRA [Suspect]
     Active Substance: INFLIXIMAB-DYYB
     Dosage: 400 MG, EVERY 7 WEEKS
     Route: 042
     Dates: start: 20180511, end: 20190111
  23. INFLECTRA [Suspect]
     Active Substance: INFLIXIMAB-DYYB
     Dosage: 400 MG, EVERY 7 WEEKS
     Route: 042
     Dates: start: 20190111
  24. INFLECTRA [Suspect]
     Active Substance: INFLIXIMAB-DYYB
     Dosage: 300 MG, EVERY 8 WEEKS
     Route: 042
     Dates: start: 20191004
  25. INFLECTRA [Suspect]
     Active Substance: INFLIXIMAB-DYYB
     Dosage: 800 MG, EVERY 7 WEEKS
     Route: 042
     Dates: start: 20200708
  26. HYDROCORTISONE. [Concomitant]
     Active Substance: HYDROCORTISONE
     Indication: PREMEDICATION
     Dosage: 100 MG
     Dates: start: 20200708
  27. HYDROCORTISONE. [Concomitant]
     Active Substance: HYDROCORTISONE
     Dosage: 100 MG
     Dates: start: 20210203, end: 20210203
  28. INFLECTRA [Suspect]
     Active Substance: INFLIXIMAB-DYYB
     Dosage: 400 MG, EVERY 7 WEEKS
     Route: 042
     Dates: start: 20180817
  29. INFLECTRA [Suspect]
     Active Substance: INFLIXIMAB-DYYB
     Dosage: 800 MG, EVERY 7 WEEKS
     Route: 042
     Dates: start: 20200130
  30. DIMENHYDRINATE. [Concomitant]
     Active Substance: DIMENHYDRINATE
     Indication: PREMEDICATION
     Dosage: 50 MG
     Dates: start: 20200708
  31. DIMENHYDRINATE. [Concomitant]
     Active Substance: DIMENHYDRINATE
     Dosage: 50 MG
     Dates: start: 20210203, end: 20210203
  32. DIPHENHYDRAMINE. [Concomitant]
     Active Substance: DIPHENHYDRAMINE
     Dosage: 50 MG
     Dates: start: 20210203, end: 20210203
  33. INFLECTRA [Suspect]
     Active Substance: INFLIXIMAB-DYYB
     Dosage: 300 MG, EVERY 8 WEEKS
     Route: 042
     Dates: start: 20190628
  34. INFLECTRA [Suspect]
     Active Substance: INFLIXIMAB-DYYB
     Dosage: 800 MG, EVERY 7 WEEKS
     Route: 042
     Dates: start: 20200130
  35. METHOTREXATE. [Concomitant]
     Active Substance: METHOTREXATE
     Dosage: 11 TABLETS, EVERY WEEK
     Route: 065
     Dates: start: 2015

REACTIONS (18)
  - Poor venous access [Unknown]
  - Tooth abscess [Recovered/Resolved]
  - Hypersensitivity [Unknown]
  - Product dose omission issue [Unknown]
  - Blood iron decreased [Unknown]
  - Oropharyngeal pain [Unknown]
  - Pyrexia [Unknown]
  - Inappropriate schedule of product administration [Unknown]
  - Expired product administered [Unknown]
  - Off label use [Unknown]
  - Haemoglobin decreased [Unknown]
  - Tooth infection [Unknown]
  - Feeling of body temperature change [Unknown]
  - Body temperature decreased [Unknown]
  - Urticaria [Unknown]
  - Pallor [Unknown]
  - Injection site extravasation [Unknown]
  - Dysphonia [Unknown]

NARRATIVE: CASE EVENT DATE: 20171128
